FAERS Safety Report 19769422 (Version 1)
Quarter: 2021Q3

REPORT INFORMATION
  Report Type: Spontaneous
  Country: US (occurrence: US)
  Receive Date: 20210831
  Receipt Date: 20210831
  Transmission Date: 20211014
  Serious: No
  Sender: FDA-Public Use
  Company Number: US-009507513-2108USA002040

PATIENT

DRUGS (3)
  1. TAXOL [Concomitant]
     Active Substance: PACLITAXEL
     Dosage: 252 MILLIGRAM, UNK
     Route: 042
  2. CARBOPLATIN. [Concomitant]
     Active Substance: CARBOPLATIN
     Dosage: 248 MILLIGRAM, UNK
     Route: 042
  3. KEYTRUDA [Suspect]
     Active Substance: PEMBROLIZUMAB
     Dosage: 200 MILLIGRAM, UNK
     Route: 042

REACTIONS (5)
  - Product temperature excursion issue [Unknown]
  - Product distribution issue [Unknown]
  - No adverse event [Unknown]
  - Product dose omission issue [Unknown]
  - Product storage error [Unknown]
